FAERS Safety Report 7335111-4 (Version None)
Quarter: 2011Q1

REPORT INFORMATION
  Report Type: 
  Country: None (occurrence: None)
  Receive Date: 20110307
  Receipt Date: 20110303
  Transmission Date: 20110831
  Serious: Yes (Hospitalization, Other)
  Sender: FDA-Public Use
  Company Number: US-BAYER-2011-020333

PATIENT
  Sex: Female

DRUGS (1)
  1. YAZ [Suspect]
     Indication: PRODUCT USED FOR UNKNOWN INDICATION
     Dosage: UNK
     Route: 048
     Dates: start: 20070101

REACTIONS (5)
  - GALLBLADDER DISORDER [None]
  - PAIN [None]
  - GALLBLADDER POLYP [None]
  - ANXIETY [None]
  - NEPHROLITHIASIS [None]
